FAERS Safety Report 15283648 (Version 1)
Quarter: 2018Q4

REPORT INFORMATION
  Report Type: Report from Study
  Country: ES (occurrence: ES)
  Receive Date: 20180816
  Receipt Date: 20180816
  Transmission Date: 20190204
  Serious: Yes (Hospitalization)
  Sender: FDA-Public Use
  Company Number: ES-TEVA-2018-ES-941659

PATIENT
  Age: 67 Year
  Sex: Female

DRUGS (3)
  1. IDARUBICINA [Suspect]
     Active Substance: IDARUBICIN
     Dosage: 19.44 MILLIGRAM DAILY;
     Route: 042
     Dates: start: 20171107, end: 20171109
  2. CITARABINA (124A) [Suspect]
     Active Substance: CYTARABINE
     Dosage: 324 MILLIGRAM DAILY;
     Route: 042
     Dates: start: 20171107, end: 20171112
  3. HIDROXIUREA [Suspect]
     Active Substance: HYDROXYUREA
     Dosage: 1GR/8H
     Route: 048
     Dates: start: 20171031, end: 20171106

REACTIONS (1)
  - Hepatitis [Recovered/Resolved]

NARRATIVE: CASE EVENT DATE: 20171108
